FAERS Safety Report 6512043-2 (Version None)
Quarter: 2009Q4

REPORT INFORMATION
  Report Type: 
  Country: None (occurrence: None)
  Receive Date: 20091222
  Receipt Date: 20090521
  Transmission Date: 20100525
  Serious: No
  Sender: FDA-Public Use
  Company Number: US-ASTRAZENECA-2009UW13058

PATIENT
  Age: 89 Year
  Sex: Male
  Weight: 88.5 kg

DRUGS (4)
  1. CRESTOR [Suspect]
     Route: 048
     Dates: start: 20090301
  2. ZETIA [Concomitant]
  3. ZESTRIL [Concomitant]
     Indication: HYPERTENSION
  4. TOPROL-XL [Concomitant]

REACTIONS (1)
  - MUSCLE SPASMS [None]
